FAERS Safety Report 12199272 (Version 1)
Quarter: 2016Q1

REPORT INFORMATION
  Report Type: Spontaneous
  Country: US (occurrence: None)
  Receive Date: 20160321
  Receipt Date: 20160321
  Transmission Date: 20160526
  Serious: Yes (Hospitalization)
  Sender: FDA-Public Use
  Company Number: None

PATIENT
  Age: 77 Year
  Sex: Female

DRUGS (1)
  1. PREDNISONE 10 [Suspect]
     Active Substance: PREDNISONE
     Route: 048

REACTIONS (4)
  - Hypotension [None]
  - Clostridium test positive [None]
  - Diarrhoea [None]
  - Bradycardia [None]

NARRATIVE: CASE EVENT DATE: 20150128
